FAERS Safety Report 21314512 (Version 2)
Quarter: 2024Q2

REPORT INFORMATION
  Report Type: Spontaneous
  Country: US (occurrence: US)
  Receive Date: 20220909
  Receipt Date: 20240605
  Transmission Date: 20240716
  Serious: No
  Sender: FDA-Public Use
  Company Number: US-PFIZER INC-PV202200036960

PATIENT
  Age: 69 Year
  Sex: Male

DRUGS (2)
  1. CIBINQO [Suspect]
     Active Substance: ABROCITINIB
     Indication: Dermatitis atopic
     Dosage: 100 MG, DAILY (TWO OF THE 50 MG TO MAKE OF A 100 MG)
  2. CIBINQO [Suspect]
     Active Substance: ABROCITINIB
     Indication: Rash erythematous
     Dosage: 100 MG, 1X/DAY (100 MG STRENGTH)
     Route: 048

REACTIONS (1)
  - Hypoacusis [Unknown]
